FAERS Safety Report 4861145-5 (Version None)
Quarter: 2005Q4

REPORT INFORMATION
  Report Type: 
  Country: None (occurrence: None)
  Receive Date: 20051220
  Receipt Date: 20051208
  Transmission Date: 20060501
  Serious: Yes (Other)
  Sender: FDA-Public Use
  Company Number: FI-SANOFI-SYNTHELABO-A01200508703

PATIENT

DRUGS (1)
  1. PLAVIX [Suspect]
     Indication: ARTERIOSCLEROSIS
     Dosage: UNK
     Route: 048

REACTIONS (2)
  - HAEMOGLOBIN DECREASED [None]
  - POLYMYALGIA RHEUMATICA [None]
